FAERS Safety Report 7937224-2 (Version None)
Quarter: 2011Q4

REPORT INFORMATION
  Report Type: 
  Country: None (occurrence: None)
  Receive Date: 20111123
  Receipt Date: 20111117
  Transmission Date: 20120403
  Serious: Yes (Other)
  Sender: FDA-Public Use
  Company Number: FR-GLAXOSMITHKLINE-B0733155A

PATIENT
  Sex: Female
  Weight: 87 kg

DRUGS (1)
  1. LAPATINIB [Suspect]
     Indication: BREAST CANCER METASTATIC
     Dosage: 1250MG PER DAY
     Route: 048
     Dates: start: 20110301, end: 20110501

REACTIONS (2)
  - JAUNDICE CHOLESTATIC [None]
  - HEPATOCELLULAR INJURY [None]
